FAERS Safety Report 18307196 (Version 1)
Quarter: 2020Q3

REPORT INFORMATION
  Report Type: Spontaneous
  Country: DE (occurrence: DE)
  Receive Date: 20200924
  Receipt Date: 20200924
  Transmission Date: 20201103
  Serious: Yes (Hospitalization)
  Sender: FDA-Public Use
  Company Number: DE-TEVA-2020-DE-1829986

PATIENT
  Age: 16 Year
  Sex: Female
  Weight: 64 kg

DRUGS (8)
  1. RISPERIDON 1MG [Concomitant]
     Active Substance: RISPERIDONE
     Indication: BORDERLINE PERSONALITY DISORDER
     Dosage: 1 DOSAGE FORMS DAILY;
  2. RISPERIDON 1MG [Suspect]
     Active Substance: RISPERIDONE
     Indication: SUICIDAL IDEATION
     Dosage: 10 DOSAGE FORMS DAILY;
     Route: 048
  3. RISPERIDON 1MG [Suspect]
     Active Substance: RISPERIDONE
     Indication: SUICIDAL IDEATION
     Dosage: 10 DOSAGE FORMS DAILY;
     Route: 048
     Dates: start: 20190910
  4. VENLAFAXIN 75MG [Suspect]
     Active Substance: VENLAFAXINE HYDROCHLORIDE
     Indication: SUICIDAL IDEATION
     Dosage: 20 DOSAGE FORMS DAILY;
     Route: 048
     Dates: start: 20190910
  5. OLANZAPIN 2,5MG [Suspect]
     Active Substance: OLANZAPINE
     Indication: SUICIDAL IDEATION
     Dosage: 4 DOSAGE FORMS DAILY;
     Route: 048
     Dates: start: 20190910
  6. CITALOPRAM [Concomitant]
     Active Substance: CITALOPRAM HYDROBROMIDE
     Indication: BORDERLINE PERSONALITY DISORDER
     Dosage: 1 DOSAGE FORMS DAILY;
     Route: 048
  7. LEVOMEPROMAZIN 25MG [Concomitant]
     Active Substance: LEVOMEPROMAZINE
     Indication: BORDERLINE PERSONALITY DISORDER
  8. L?THYROXIN 125UG [Concomitant]
     Indication: HYPOTHYROIDISM
     Dosage: .5 DOSAGE FORMS DAILY;

REACTIONS (5)
  - Intentional overdose [Unknown]
  - Toxicity to various agents [Unknown]
  - Circulatory collapse [Unknown]
  - Syncope [Unknown]
  - Somnolence [Unknown]

NARRATIVE: CASE EVENT DATE: 20190910
